FAERS Safety Report 6780807-6 (Version None)
Quarter: 2010Q2

REPORT INFORMATION
  Report Type: 
  Country: None (occurrence: None)
  Receive Date: 20100621
  Receipt Date: 20100324
  Transmission Date: 20101027
  Serious: Yes (Hospitalization, Other)
  Sender: FDA-Public Use
  Company Number: US-BAYER-200928575NA

PATIENT
  Age: 24 Year
  Sex: Female
  Weight: 88 kg

DRUGS (12)
  1. YAZ [Suspect]
     Indication: CONTRACEPTION
     Route: 048
     Dates: start: 20030101, end: 20050101
  2. YAZ [Suspect]
     Route: 048
     Dates: start: 20060101, end: 20080101
  3. YASMIN [Suspect]
     Indication: CONTRACEPTION
     Route: 048
     Dates: start: 20030101, end: 20050101
  4. YASMIN [Suspect]
     Route: 048
     Dates: start: 20060101, end: 20080101
  5. MINOCYCLINE [Concomitant]
     Dates: start: 20060701
  6. BETASERON [Concomitant]
     Indication: MULTIPLE SCLEROSIS
     Dates: start: 20051001
  7. IBUPROFEN [Concomitant]
     Dates: start: 20060401
  8. BIAXIN [Concomitant]
     Dates: start: 20090601
  9. AMPICILLIN [Concomitant]
     Dates: start: 20050901
  10. OXYCODONE HCL AND ACETAMINOPHEN [Concomitant]
     Dates: start: 20060401
  11. TRETINOIN [Concomitant]
     Dates: start: 20050301
  12. NATALCARE PLUS [Concomitant]
     Dates: start: 20050901

REACTIONS (4)
  - ABDOMINAL PAIN [None]
  - CHOLECYSTITIS CHRONIC [None]
  - EMOTIONAL DISTRESS [None]
  - LYMPHOID TISSUE HYPERPLASIA [None]
